FAERS Safety Report 18632794 (Version 1)
Quarter: 2020Q4

REPORT INFORMATION
  Report Type: Spontaneous
  Country: US (occurrence: US)
  Receive Date: 20201218
  Receipt Date: 20201218
  Transmission Date: 20210114
  Serious: No
  Sender: FDA-Public Use
  Company Number: US-MACLEODS PHARMACEUTICALS US LTD-MAC2020029444

PATIENT
  Age: 65 Year
  Sex: Male

DRUGS (1)
  1. TRIAMCINOLONE 0.1 % CREAM [Suspect]
     Active Substance: TRIAMCINOLONE
     Indication: PRURITUS
     Dosage: UNK UNK, BID, TWO DABS ON EACH LEG TWICE
     Route: 065
     Dates: start: 20200817, end: 20200827

REACTIONS (1)
  - Fungal skin infection [Unknown]

NARRATIVE: CASE EVENT DATE: 20200901
